FAERS Safety Report 24597464 (Version 1)
Quarter: 2024Q4

REPORT INFORMATION
  Report Type: Other
  Country: US (occurrence: US)
  Receive Date: 20241110
  Receipt Date: 20241110
  Transmission Date: 20250115
  Serious: No
  Sender: AVEVA DRUG DELIVERY SYSTEMS INC.
  Company Number: US-AVEVA-000777

PATIENT
  Age: 23 Year
  Sex: Female

DRUGS (2)
  1. NICOTINE [Suspect]
     Active Substance: NICOTINE
     Indication: Tobacco user
     Dosage: UNK
     Route: 065
  2. NICOTINE [Suspect]
     Active Substance: NICOTINE
     Indication: Electronic cigarette user
     Dosage: UNK
     Route: 065

REACTIONS (1)
  - Drug ineffective [Unknown]
